FAERS Safety Report 21863746 (Version 1)
Quarter: 2023Q1

REPORT INFORMATION
  Report Type: Report from Study
  Country: US (occurrence: US)
  Receive Date: 20230116
  Receipt Date: 20230116
  Transmission Date: 20230418
  Serious: No
  Sender: FDA-Public Use
  Company Number: US-BIOVITRUM-2022US11215

PATIENT
  Sex: Female

DRUGS (2)
  1. KINERET [Suspect]
     Active Substance: ANAKINRA
     Indication: Rheumatoid arthritis
     Dates: start: 202209
  2. KINERET [Suspect]
     Active Substance: ANAKINRA
     Dates: start: 20220810

REACTIONS (9)
  - COVID-19 [Recovered/Resolved]
  - Blood pressure increased [Unknown]
  - Depression [Unknown]
  - Arthritis [Unknown]
  - Arthralgia [Unknown]
  - Pain in extremity [Unknown]
  - Injection site pain [Unknown]
  - Manufacturing production issue [Unknown]
  - Drug ineffective [Unknown]
